FAERS Safety Report 15279384 (Version 1)
Quarter: 2018Q3

REPORT INFORMATION
  Report Type: Spontaneous
  Country: US (occurrence: US)
  Receive Date: 20180730
  Receipt Date: 20180730
  Transmission Date: 20181010
  Serious: Yes (Other)
  Sender: FDA-Public Use
  Company Number: None

PATIENT
  Age: 99 Year
  Sex: Female
  Weight: 51 kg

DRUGS (1)
  1. ERTAPENEM. [Suspect]
     Active Substance: ERTAPENEM SODIUM
     Indication: CYSTITIS ESCHERICHIA
     Route: 040
     Dates: start: 20180723, end: 20180730

REACTIONS (1)
  - Seizure [None]

NARRATIVE: CASE EVENT DATE: 20180730
